FAERS Safety Report 7915593-7 (Version None)
Quarter: 2011Q4

REPORT INFORMATION
  Report Type: 
  Country: None (occurrence: None)
  Receive Date: 20111115
  Receipt Date: 20110727
  Transmission Date: 20120403
  Serious: No
  Sender: FDA-Public Use
  Company Number: US-BRISTOL-MYERS SQUIBB COMPANY-15908049

PATIENT
  Age: 71 Year
  Sex: Male
  Weight: 82 kg

DRUGS (2)
  1. VITAMIN TAB [Concomitant]
  2. YERVOY [Suspect]
     Dosage: LAST TREATMENT: 13JUL11.

REACTIONS (1)
  - DIARRHOEA [None]
